FAERS Safety Report 7524681-9 (Version None)
Quarter: 2011Q2

REPORT INFORMATION
  Report Type: 
  Country: None (occurrence: None)
  Receive Date: 20110602
  Receipt Date: 20110602
  Transmission Date: 20111010
  Serious: Yes (Hospitalization)
  Sender: FDA-Public Use
  Company Number: None

PATIENT
  Age: 69 Year
  Sex: Female
  Weight: 74.8435 kg

DRUGS (1)
  1. LIPITOR [Suspect]
     Indication: MYOCARDIAL INFARCTION
     Dates: start: 20020426, end: 20100615

REACTIONS (12)
  - DYSPNOEA [None]
  - MITOCHONDRIAL MYOPATHY [None]
  - BLOOD CHOLESTEROL INCREASED [None]
  - BURNING SENSATION [None]
  - INFLAMMATION [None]
  - AMINO ACID LEVEL DECREASED [None]
  - ASTHENIA [None]
  - FATIGUE [None]
  - PAIN [None]
  - MYALGIA [None]
  - CHEST DISCOMFORT [None]
  - ASPHYXIA [None]
